FAERS Safety Report 24294252 (Version 1)
Quarter: 2024Q3

REPORT INFORMATION
  Report Type: Spontaneous
  Country: US (occurrence: US)
  Receive Date: 20240906
  Receipt Date: 20240906
  Transmission Date: 20241016
  Serious: No
  Sender: DOMPE FARMACEUTICI
  Company Number: US-FARMAPROD-202406-2249

PATIENT
  Sex: Female

DRUGS (18)
  1. OXERVATE [Suspect]
     Active Substance: CENEGERMIN-BKBJ
     Indication: Neurotrophic keratopathy
     Route: 047
     Dates: start: 20240605
  2. REFRESH CLASSIC [Concomitant]
     Active Substance: POLYVINYL ALCOHOL\POVIDONE
  3. UNSPECIFIED INGREDIENT [Concomitant]
     Active Substance: UNSPECIFIED INGREDIENT
  4. MINERALS\VITAMINS [Concomitant]
     Active Substance: MINERALS\VITAMINS
  5. VITAMIN E [Concomitant]
     Active Substance: .ALPHA.-TOCOPHEROL
  6. MULTIVITAMIN 50 PLUS [Concomitant]
  7. ASPIRIN [Concomitant]
     Active Substance: ASPIRIN
  8. HYDROCHLOROTHIAZIDE [Concomitant]
     Active Substance: HYDROCHLOROTHIAZIDE
  9. SYNTHROID [Concomitant]
     Active Substance: LEVOTHYROXINE SODIUM
  10. FARXIGA [Concomitant]
     Active Substance: DAPAGLIFLOZIN PROPANEDIOL
  11. ELIQUIS [Concomitant]
     Active Substance: APIXABAN
  12. TORSEMIDE [Concomitant]
     Active Substance: TORSEMIDE
  13. AMLODIPINE BESYLATE-BENAZEPRIL [Concomitant]
  14. CARVEDILOL [Concomitant]
     Active Substance: CARVEDILOL
  15. FERROUS SULFATE [Concomitant]
     Active Substance: FERROUS SULFATE
  16. CLOPIDOGREL [Concomitant]
     Active Substance: CLOPIDOGREL BISULFATE
  17. RANOLAZINE [Concomitant]
     Active Substance: RANOLAZINE
     Dosage: EXTENDED RELEASE
  18. LOVASTATIN [Concomitant]
     Active Substance: LOVASTATIN
     Dosage: EXTENDED RELEASE

REACTIONS (2)
  - Eye pain [Unknown]
  - Eye irritation [Unknown]
